FAERS Safety Report 25111863 (Version 1)
Quarter: 2025Q1

REPORT INFORMATION
  Report Type: Other
  Country: CN (occurrence: CN)
  Receive Date: 20250324
  Receipt Date: 20250324
  Transmission Date: 20250408
  Serious: Yes (Hospitalization, Disabling)
  Sender: KARYOPHARM THERAPEUTICS
  Company Number: CN-KARYOPHARM-2025KPT100035

PATIENT

DRUGS (3)
  1. SELINEXOR [Suspect]
     Active Substance: SELINEXOR
     Indication: Leukaemia
     Route: 048
     Dates: start: 20250213, end: 20250227
  2. OLVEREMBATINIB [Concomitant]
     Active Substance: OLVEREMBATINIB
     Dates: start: 20250213, end: 20250219
  3. VENETOCLAX [Concomitant]
     Active Substance: VENETOCLAX
     Dates: start: 20250220, end: 20250226

REACTIONS (6)
  - Aspartate aminotransferase increased [Recovering/Resolving]
  - Alanine aminotransferase increased [Recovering/Resolving]
  - White blood cell count decreased [Recovering/Resolving]
  - Neutrophil count decreased [Recovering/Resolving]
  - Platelet count decreased [Recovering/Resolving]
  - Off label use [Unknown]

NARRATIVE: CASE EVENT DATE: 20250213
